FAERS Safety Report 16763345 (Version 2)
Quarter: 2019Q3

REPORT INFORMATION
  Report Type: Spontaneous
  Country: US (occurrence: US)
  Receive Date: 20190902
  Receipt Date: 20190905
  Transmission Date: 20191005
  Serious: No
  Sender: FDA-Public Use
  Company Number: US-TEVA-2019-US-1100984

PATIENT
  Age: 63 Year
  Sex: Female

DRUGS (2)
  1. ACTAVIS CLONAZEPAM [Suspect]
     Active Substance: CLONAZEPAM
     Indication: ANXIETY
     Dosage: BEDTIME
     Route: 065
     Dates: start: 20190401
  2. ACTAVIS CLONAZEPAM [Suspect]
     Active Substance: CLONAZEPAM
     Indication: SLEEP DISORDER
     Dosage: OBTAIN A DOSE OF 0.5 MG
     Dates: start: 20190401

REACTIONS (9)
  - Migraine [Unknown]
  - Sinus headache [Unknown]
  - Insomnia [Unknown]
  - Palpitations [Unknown]
  - Tinnitus [Unknown]
  - Nervousness [Unknown]
  - Product substitution issue [Unknown]
  - Drug ineffective [Unknown]
  - Feeling abnormal [Unknown]

NARRATIVE: CASE EVENT DATE: 20190401
